FAERS Safety Report 23332402 (Version 1)
Quarter: 2023Q4

REPORT INFORMATION
  Report Type: Spontaneous
  Country: US (occurrence: US)
  Receive Date: 20231222
  Receipt Date: 20231222
  Transmission Date: 20240110
  Serious: No
  Sender: FDA-Public Use
  Company Number: US-HALEON-USCH2023AMR062886

PATIENT
  Sex: Male

DRUGS (1)
  1. DICLOFENAC SODIUM [Suspect]
     Active Substance: DICLOFENAC\DICLOFENAC SODIUM
     Indication: Psoriasis
     Dosage: UNKNOWN
     Route: 061

REACTIONS (3)
  - Skin lesion [Unknown]
  - Psoriasis [Unknown]
  - Product use in unapproved indication [Unknown]
